FAERS Safety Report 16267244 (Version 2)
Quarter: 2019Q3

REPORT INFORMATION
  Report Type: Report from Study
  Country: CA (occurrence: CA)
  Receive Date: 20190502
  Receipt Date: 20190912
  Transmission Date: 20191004
  Serious: Yes (Other)
  Sender: FDA-Public Use
  Company Number: PHHY2018CA067917

PATIENT
  Age: 35 Year
  Sex: Female

DRUGS (5)
  1. COSENTYX [Suspect]
     Active Substance: SECUKINUMAB
     Dosage: 300 MG, QMO
     Route: 058
     Dates: start: 20180609
  2. COSENTYX [Suspect]
     Active Substance: SECUKINUMAB
     Dosage: 300 MG, QMO
     Route: 058
     Dates: start: 20190820
  3. COSENTYX [Suspect]
     Active Substance: SECUKINUMAB
     Dosage: 300 MG, QMO
     Route: 058
     Dates: start: 20190114
  4. COSENTYX [Suspect]
     Active Substance: SECUKINUMAB
     Dosage: 300 MG, QW
     Route: 058
     Dates: start: 20180502
  5. COSENTYX [Suspect]
     Active Substance: SECUKINUMAB
     Indication: PSORIASIS
     Dosage: 300 MG, QW
     Route: 058
     Dates: start: 20180411

REACTIONS (12)
  - Diarrhoea [Unknown]
  - Pruritus [Unknown]
  - Haemorrhoidal haemorrhage [Unknown]
  - Nasopharyngitis [Not Recovered/Not Resolved]
  - Psoriasis [Unknown]
  - Fatigue [Not Recovered/Not Resolved]
  - Rhinorrhoea [Unknown]
  - Pneumonia [Unknown]
  - Papilloma viral infection [Unknown]
  - Haemorrhoids thrombosed [Unknown]
  - Feeling hot [Unknown]
  - Headache [Unknown]

NARRATIVE: CASE EVENT DATE: 20180412
